FAERS Safety Report 23454117 (Version 6)
Quarter: 2025Q1

REPORT INFORMATION
  Report Type: Other
  Country: CA (occurrence: CA)
  Receive Date: 20240130
  Receipt Date: 20250206
  Transmission Date: 20250409
  Serious: No
  Sender: TOLMAR
  Company Number: CA-TOLMAR, INC.-24CA046013

PATIENT
  Age: 78 Year
  Sex: Male

DRUGS (7)
  1. ELIGARD [Suspect]
     Active Substance: LEUPROLIDE ACETATE
     Indication: Prostate cancer
     Dosage: 22.5 MILLIGRAM, Q 3 MONTH
     Route: 058
     Dates: start: 20231013
  2. ELIGARD [Suspect]
     Active Substance: LEUPROLIDE ACETATE
     Indication: Neoplasm prostate
     Dosage: 22.5 MILLIGRAM, Q 3 MONTH
     Route: 058
     Dates: start: 20240108
  3. ELIGARD [Suspect]
     Active Substance: LEUPROLIDE ACETATE
     Dosage: 22.5 MILLIGRAM, Q 3 MONTH
     Route: 058
     Dates: start: 20240401
  4. ELIGARD [Suspect]
     Active Substance: LEUPROLIDE ACETATE
     Dosage: 22.5 MILLIGRAM, Q 3 MONTH
     Route: 058
     Dates: start: 20240624
  5. ELIGARD [Suspect]
     Active Substance: LEUPROLIDE ACETATE
     Dosage: 22.5 MILLIGRAM, Q 3 MONTH
     Route: 058
     Dates: start: 20240917
  6. ELIGARD [Suspect]
     Active Substance: LEUPROLIDE ACETATE
     Dosage: 22.5 MILLIGRAM, Q 3 MONTH
     Route: 058
     Dates: start: 20241211
  7. RADIATION THERAPY [Suspect]
     Active Substance: RADIATION THERAPY
     Indication: Product used for unknown indication
     Dates: start: 20240509, end: 20240607

REACTIONS (10)
  - Product administration error [Unknown]
  - Device connection issue [Unknown]
  - Syringe issue [Unknown]
  - Device issue [Unknown]
  - Micturition urgency [Unknown]
  - Hot flush [Not Recovered/Not Resolved]
  - Fatigue [Unknown]
  - Night sweats [Unknown]
  - Nocturia [Unknown]
  - Weight increased [Unknown]

NARRATIVE: CASE EVENT DATE: 20241211
